FAERS Safety Report 7519274-3 (Version None)
Quarter: 2011Q2

REPORT INFORMATION
  Report Type: 
  Country: None (occurrence: None)
  Receive Date: 20110602
  Receipt Date: 20110518
  Transmission Date: 20111010
  Serious: Yes (Death, Hospitalization)
  Sender: FDA-Public Use
  Company Number: JP-JNJFOC-20110102047

PATIENT
  Age: 48 Year
  Sex: Female
  Weight: 43 kg

DRUGS (192)
  1. LASIX [Suspect]
     Route: 048
     Dates: start: 20101117, end: 20101122
  2. ROCEPHIN [Suspect]
     Dates: start: 20101118, end: 20101122
  3. URSO 250 [Concomitant]
     Route: 048
     Dates: start: 20101221, end: 20110103
  4. DEPAS [Concomitant]
     Route: 048
     Dates: start: 20101215, end: 20101225
  5. HEPAFLUSH [Concomitant]
     Dates: start: 20100821, end: 20100822
  6. HEPAFLUSH [Concomitant]
     Dates: start: 20101022, end: 20101111
  7. ISOTONIC SODIUM CHLORIDE [Concomitant]
     Route: 042
     Dates: start: 20101001, end: 20101003
  8. NEO-MINOPHAGEN C [Concomitant]
     Dates: start: 20100826, end: 20100826
  9. NEO-MINOPHAGEN C [Concomitant]
     Dates: start: 20100817, end: 20100817
  10. NEO-MINOPHAGEN C [Concomitant]
     Dates: start: 20100914, end: 20100914
  11. DOVONEX [Concomitant]
     Dates: start: 20100901, end: 20100901
  12. FUNGIZONE [Concomitant]
     Route: 048
     Dates: start: 20100926, end: 20100927
  13. METHYLPREDNISOLONE SODIUM SUCCINATE [Concomitant]
     Dates: start: 20101022, end: 20101024
  14. METHYLPREDNISOLONE SODIUM SUCCINATE [Concomitant]
     Dates: start: 20110101, end: 20110103
  15. PREDNISOLONE [Concomitant]
     Route: 048
     Dates: start: 20101201, end: 20101224
  16. PREDNISOLONE [Concomitant]
     Route: 048
     Dates: start: 20101224, end: 20110103
  17. PREDNISOLONE [Concomitant]
     Route: 048
     Dates: start: 20101025, end: 20101109
  18. GLUCOSE [Concomitant]
     Dates: start: 20101119, end: 20110103
  19. LEVOTHYROXINE SODIUM [Concomitant]
     Route: 048
     Dates: start: 20101106, end: 20101126
  20. TPN ELECTROLYTES IN PLASTIC CONTAINER [Concomitant]
     Dates: start: 20101201, end: 20101206
  21. ISODINE GARGLE [Concomitant]
     Dates: start: 20100901, end: 20100901
  22. ISODINE GARGLE [Concomitant]
     Dates: start: 20100827, end: 20100827
  23. FIRSTCIN [Suspect]
     Dates: start: 20101119, end: 20101119
  24. RABEPRAZOLE SODIUM [Suspect]
     Route: 048
     Dates: start: 20101102, end: 20101106
  25. HYDROCORTISONE BUTYRATE [Concomitant]
     Indication: PSORIATIC ARTHROPATHY
     Route: 061
  26. ISOTONIC SODIUM CHLORIDE [Concomitant]
     Route: 042
     Dates: start: 20100928, end: 20100928
  27. HYALEIN [Concomitant]
     Dates: start: 20101008, end: 20101008
  28. PRIMPERAN TAB [Concomitant]
     Dates: start: 20101024, end: 20101024
  29. VEEN-D [Concomitant]
     Dates: start: 20101025, end: 20101025
  30. PREDNISOLONE [Concomitant]
     Route: 048
     Dates: start: 20101109, end: 20101116
  31. FAMOTIDINE [Concomitant]
     Dates: start: 20101106
  32. ACETAMINOPHEN [Concomitant]
     Route: 048
     Dates: start: 20101230, end: 20110108
  33. LAC-B [Concomitant]
     Route: 048
     Dates: start: 20101201, end: 20101207
  34. MEYLON [Concomitant]
     Dates: start: 20110102, end: 20110102
  35. ANTEBATE [Concomitant]
     Dosage: START DATE REPORTED AS PRIOR TO INITIATION OF INFLIXIMAB
  36. OLMESARTAN MEDOXOMIL [Concomitant]
     Dates: start: 20100914, end: 20100918
  37. OLMESARTAN MEDOXOMIL [Concomitant]
     Dates: start: 20100901, end: 20100907
  38. REMICADE [Suspect]
     Dosage: 3RD DOSE
     Route: 042
     Dates: start: 20100928
  39. SULFAMETHOXAZOLE [Suspect]
     Dosage: 6 TABS
     Route: 048
     Dates: start: 20101025, end: 20101111
  40. ALBUMIN (HUMAN) [Suspect]
     Indication: PRODUCT USED FOR UNKNOWN INDICATION
     Dates: start: 20101202, end: 20101204
  41. RABEPRAZOLE SODIUM [Suspect]
     Indication: PRODUCT USED FOR UNKNOWN INDICATION
     Route: 048
     Dates: start: 20101028, end: 20101028
  42. RABEPRAZOLE SODIUM [Suspect]
     Route: 048
     Dates: start: 20101029, end: 20101031
  43. ALDACTONE [Suspect]
     Indication: PRODUCT USED FOR UNKNOWN INDICATION
     Route: 048
     Dates: start: 20101112, end: 20101114
  44. URSO 250 [Concomitant]
     Indication: HEPATITIS C
     Route: 048
     Dates: start: 20101029, end: 20101122
  45. ANTEBATE [Concomitant]
     Indication: PSORIATIC ARTHROPATHY
     Route: 061
  46. DEPAS [Concomitant]
     Indication: INSOMNIA
     Route: 048
     Dates: start: 20100915, end: 20101122
  47. HEPAFLUSH [Concomitant]
     Dates: start: 20101118, end: 20101124
  48. DISTILLED WATER [Concomitant]
     Dates: start: 20101122, end: 20101124
  49. LEVOFLOXACIN [Concomitant]
     Route: 048
     Dates: start: 20101222, end: 20110103
  50. LEVOFLOXACIN [Concomitant]
     Route: 048
     Dates: start: 20100827, end: 20100830
  51. DOVONEX [Concomitant]
     Dates: start: 20100926, end: 20100926
  52. SELBEX [Concomitant]
  53. VITAMEDIN [Concomitant]
     Dates: start: 20110102, end: 20110103
  54. ATARAX [Concomitant]
     Dates: start: 20110101, end: 20110103
  55. ACETAMINOPHEN [Concomitant]
     Route: 048
     Dates: start: 20101119, end: 20101123
  56. ALLOID G [Concomitant]
     Route: 048
     Dates: start: 20101124, end: 20101130
  57. DEXALTIN [Concomitant]
     Dates: start: 20101201, end: 20101201
  58. INTAL [Concomitant]
     Dates: start: 20101211, end: 20101228
  59. MEPTIN [Concomitant]
     Dates: start: 20101222, end: 20101228
  60. INOVAN [Concomitant]
     Dates: start: 20110103, end: 20110103
  61. SULFAMETHOXAZOLE [Suspect]
     Dosage: 6 TABS
     Route: 048
     Dates: start: 20101029, end: 20101031
  62. SULFAMETHOXAZOLE [Suspect]
     Dosage: 2 TABS
     Route: 048
     Dates: start: 20101118, end: 20101119
  63. LASIX [Suspect]
     Indication: PRODUCT USED FOR UNKNOWN INDICATION
     Route: 048
     Dates: start: 20101102, end: 20101106
  64. ALBUMIN (HUMAN) [Suspect]
     Dates: start: 20110102, end: 20110102
  65. RABEPRAZOLE SODIUM [Suspect]
     Route: 048
     Dates: start: 20101026, end: 20101026
  66. RABEPRAZOLE SODIUM [Suspect]
     Route: 048
     Dates: start: 20101023, end: 20101025
  67. ALDACTONE [Suspect]
     Route: 048
     Dates: start: 20101115, end: 20101115
  68. HEPAFLUSH [Concomitant]
     Dates: start: 20101201, end: 20101216
  69. HEPAFLUSH [Concomitant]
     Dates: start: 20101221, end: 20110103
  70. DISTILLED WATER [Concomitant]
     Dates: start: 20100928, end: 20100928
  71. NEO-MINOPHAGEN C [Concomitant]
     Dates: start: 20100831, end: 20100831
  72. LAMISIL [Concomitant]
     Dates: start: 20100818, end: 20100818
  73. METHYLPREDNISOLONE SODIUM SUCCINATE [Concomitant]
     Dates: start: 20101221, end: 20101223
  74. VEEN-F [Concomitant]
     Dates: start: 20110102, end: 20110102
  75. PENTAZOCINE LACTATE [Concomitant]
     Dates: start: 20101231, end: 20110103
  76. ATARAX [Concomitant]
     Dates: start: 20101024, end: 20101025
  77. HUMALOG [Concomitant]
     Dates: start: 20101220, end: 20101220
  78. MAINTENANCE MEDIUM WITH GLUCOSE [Concomitant]
     Dates: start: 20101201, end: 20101204
  79. LIDOMEX [Concomitant]
     Dates: start: 20101203, end: 20101212
  80. GENINAX [Concomitant]
     Dates: start: 20101216
  81. COAHIBITOR [Concomitant]
     Dates: start: 20101231, end: 20110103
  82. OXAROL [Concomitant]
     Dosage: START DATE REPORTED AS PRIOR TO INITIATION OF INFLIXIMAB
  83. VOLTAREN [Concomitant]
     Dates: start: 20100823, end: 20100823
  84. CEFOPERAZONE SODIUM [Concomitant]
     Dates: start: 20101006, end: 20101012
  85. SULFAMETHOXAZOLE [Suspect]
     Dosage: 9 TABS
     Route: 048
     Dates: start: 20101022, end: 20101025
  86. LASIX [Suspect]
     Route: 048
     Dates: start: 20101028, end: 20101028
  87. LASIX [Suspect]
     Route: 048
     Dates: start: 20101026, end: 20101027
  88. LASIX [Suspect]
     Route: 048
     Dates: start: 20101215, end: 20101216
  89. ALBUMIN (HUMAN) [Suspect]
     Dates: start: 20101102, end: 20101106
  90. FIRSTCIN [Suspect]
     Indication: PRODUCT USED FOR UNKNOWN INDICATION
     Dates: start: 20101118, end: 20101118
  91. URSO 250 [Concomitant]
     Route: 048
     Dates: start: 20100914, end: 20101018
  92. SELBEX [Concomitant]
     Indication: PROPHYLAXIS
     Route: 048
     Dates: start: 20101121, end: 20110103
  93. HEPAFLUSH [Concomitant]
     Dates: start: 20101001, end: 20101012
  94. ISOTONIC SODIUM CHLORIDE [Concomitant]
     Route: 042
     Dates: start: 20100817, end: 20100817
  95. NEO-MINOPHAGEN C [Concomitant]
     Dates: start: 20100823, end: 20100823
  96. NEO-MINOPHAGEN C [Concomitant]
     Dates: end: 20101012
  97. FUNGIZONE [Concomitant]
     Route: 048
     Dates: start: 20101116, end: 20101122
  98. LIDEX CREAM [Concomitant]
  99. LACTATED RINGER'S [Concomitant]
     Dates: start: 20110102, end: 20110102
  100. PROPETO [Concomitant]
     Dates: start: 20101023, end: 20101129
  101. ATROPINE [Concomitant]
     Dates: start: 20101025, end: 20101025
  102. SOLDEM 1 [Concomitant]
     Dates: start: 20100101, end: 20110103
  103. ALLOID G [Concomitant]
     Route: 048
     Dates: start: 20101230, end: 20110103
  104. TPN ELECTROLYTES IN PLASTIC CONTAINER [Concomitant]
     Dates: start: 20110102, end: 20110103
  105. ETOPOSIDE [Concomitant]
     Dates: start: 20110102, end: 20110102
  106. INTRAVENOUS HYPERALIMENTATION [Concomitant]
     Dates: start: 20110102, end: 20110103
  107. ELEMENMIC [Concomitant]
     Dates: start: 20110102, end: 20110103
  108. PROPOFOL [Concomitant]
     Dates: start: 20110103, end: 20110103
  109. DERMOVATE [Concomitant]
  110. LASIX [Suspect]
     Route: 048
     Dates: start: 20101125, end: 20101125
  111. RABEPRAZOLE SODIUM [Suspect]
     Route: 048
     Dates: start: 20101027, end: 20101027
  112. ALDACTONE [Suspect]
     Route: 048
     Dates: start: 20101026, end: 20101101
  113. ALDACTONE [Suspect]
     Route: 048
     Dates: start: 20101116, end: 20101122
  114. URSO 250 [Concomitant]
     Route: 048
     Dates: start: 20100817, end: 20100906
  115. DERMOVATE [Concomitant]
     Indication: PSORIATIC ARTHROPATHY
     Route: 061
  116. DEPAS [Concomitant]
     Route: 048
     Dates: start: 20100914, end: 20100914
  117. HEPAFLUSH [Concomitant]
     Dates: start: 20100826, end: 20100826
  118. ISOTONIC SODIUM CHLORIDE [Concomitant]
     Route: 042
     Dates: start: 20100831, end: 20100831
  119. DISTILLED WATER [Concomitant]
     Dates: start: 20101102, end: 20101102
  120. NON-PYRINE COLD PREPARATION [Concomitant]
     Route: 048
     Dates: start: 20100926, end: 20100929
  121. VEEN-F [Concomitant]
     Dates: start: 20101023, end: 20101025
  122. PENTAZOCINE LACTATE [Concomitant]
     Dates: start: 20101024, end: 20101024
  123. SOLITA-T NO.4 [Concomitant]
     Dates: start: 20101026, end: 20101104
  124. MUCOSTA [Concomitant]
     Route: 048
     Dates: start: 20101026, end: 20101122
  125. SODIUM CHLORIDE 10% [Concomitant]
     Route: 042
     Dates: start: 20101102, end: 20101102
  126. FERRO-GRADUMET [Concomitant]
     Dates: start: 20101112, end: 20101122
  127. SOLDEM 1 [Concomitant]
     Dates: start: 20101119, end: 20101120
  128. LIDOMEX [Concomitant]
     Dates: start: 20101209, end: 20101209
  129. NOVO HEPARIN [Concomitant]
     Dates: start: 20110102, end: 20110102
  130. ALINAMIN F [Concomitant]
     Dates: start: 20110102, end: 20110102
  131. DERMOVATE [Concomitant]
     Dosage: START DATE REPORTED AS PRIOR TO INITIATION OF INFLIXIMAB
  132. ISODINE GARGLE [Concomitant]
     Dates: start: 20100928, end: 20100928
  133. REMICADE [Suspect]
     Indication: PSORIATIC ARTHROPATHY
     Route: 042
     Dates: start: 20100831
  134. PREDNISOLONE [Suspect]
     Indication: PROPHYLAXIS
     Route: 048
     Dates: start: 20100914, end: 20110103
  135. PREDNISOLONE [Suspect]
     Route: 048
     Dates: start: 20100901, end: 20100907
  136. LASIX [Suspect]
     Route: 048
     Dates: start: 20101029, end: 20101031
  137. MEROPENEM [Suspect]
     Indication: PRODUCT USED FOR UNKNOWN INDICATION
     Dates: start: 20101027, end: 20101105
  138. ALBUMIN (HUMAN) [Suspect]
     Dates: start: 20101231, end: 20101231
  139. ALDACTONE [Suspect]
     Route: 048
     Dates: start: 20101102, end: 20101108
  140. OXAROL [Concomitant]
     Indication: PSORIATIC ARTHROPATHY
     Route: 061
  141. DEPAS [Concomitant]
     Route: 048
     Dates: start: 20100901, end: 20100913
  142. OLMESARTAN MEDOXOMIL [Concomitant]
     Indication: HYPERTENSION
     Route: 048
     Dates: end: 20101018
  143. HEPAFLUSH [Concomitant]
     Dates: start: 20100827, end: 20100827
  144. HEPAFLUSH [Concomitant]
     Dates: start: 20100823, end: 20100823
  145. ISOTONIC SODIUM CHLORIDE [Concomitant]
     Route: 042
     Dates: start: 20100821, end: 20100827
  146. DISTILLED WATER [Concomitant]
     Dates: start: 20100817, end: 20100827
  147. NEO-MINOPHAGEN C [Concomitant]
     Dates: start: 20100819, end: 20100819
  148. NEO-MINOPHAGEN C [Concomitant]
     Dates: start: 20100928, end: 20100928
  149. NEO-MINOPHAGEN C [Concomitant]
     Dates: start: 20100928, end: 20100928
  150. DOVONEX [Concomitant]
     Dates: start: 20100928, end: 20100928
  151. DOVONEX [Concomitant]
     Dates: start: 20101008, end: 20101008
  152. FUNGIZONE [Concomitant]
     Route: 048
     Dates: start: 20100930, end: 20101018
  153. FUNGIZONE [Concomitant]
     Route: 048
     Dates: start: 20100928, end: 20100929
  154. ATARAX [Concomitant]
     Dates: start: 20101231, end: 20110103
  155. GLOVENIN-I [Concomitant]
     Dates: start: 20101028, end: 20101030
  156. POLAPREZINC [Concomitant]
     Route: 048
     Dates: start: 20101105, end: 20101110
  157. FERRO-GRADUMET [Concomitant]
     Dates: start: 20101105, end: 20101110
  158. HUMALOG [Concomitant]
     Dates: start: 20101119, end: 20101119
  159. SLOW-K [Concomitant]
     Dates: start: 20101213, end: 20101222
  160. LUPRAC [Concomitant]
     Dates: start: 20101216
  161. LOXONIN [Concomitant]
     Dates: start: 20101230, end: 20110103
  162. DALACIN-S [Concomitant]
     Dates: start: 20110102, end: 20110103
  163. VANCOMYCIN [Concomitant]
     Dates: start: 20110102, end: 20110103
  164. CIPRO [Concomitant]
  165. VOLTAREN [Concomitant]
     Dates: start: 20101119, end: 20101120
  166. ISODINE GARGLE [Concomitant]
     Dates: start: 20101116, end: 20101116
  167. REMICADE [Suspect]
     Route: 042
     Dates: start: 20100817
  168. SULFAMETHOXAZOLE [Suspect]
     Indication: PRODUCT USED FOR UNKNOWN INDICATION
     Dosage: 6 TABS
     Route: 048
     Dates: start: 20101102, end: 20101115
  169. SULFAMETHOXAZOLE [Suspect]
     Dosage: 2 TABS
     Route: 048
     Dates: start: 20101122, end: 20101123
  170. ALBUMIN (HUMAN) [Suspect]
     Dates: start: 20101119, end: 20101124
  171. FIRSTCIN [Suspect]
     Dates: start: 20101105, end: 20101110
  172. ROCEPHIN [Suspect]
     Indication: PRODUCT USED FOR UNKNOWN INDICATION
     Dates: start: 20101118, end: 20101119
  173. SELBEX [Concomitant]
     Route: 048
     Dates: start: 20100928, end: 20101025
  174. HEPAFLUSH [Concomitant]
     Dates: start: 20100824, end: 20100825
  175. HEPAFLUSH [Concomitant]
     Dates: start: 20100817, end: 20100817
  176. DISTILLED WATER [Concomitant]
     Dates: start: 20100831, end: 20100831
  177. NEO-MINOPHAGEN C [Concomitant]
     Dates: start: 20101018
  178. DEPAS [Concomitant]
  179. FUNGIZONE [Concomitant]
     Route: 048
     Dates: start: 20101103, end: 20101109
  180. HEPARIN [Concomitant]
     Dates: start: 20101015, end: 20101201
  181. GLYCERINE [Concomitant]
     Dates: start: 20101022, end: 20101022
  182. LACTATED RINGER'S [Concomitant]
     Dates: start: 20101022, end: 20101022
  183. VITAMEDIN [Concomitant]
     Dates: start: 20101023, end: 20101029
  184. PREDNISOLONE [Concomitant]
     Route: 048
     Dates: start: 20101116, end: 20101201
  185. GLOVENIN-I [Concomitant]
     Dates: start: 20101119, end: 20101121
  186. POLAPREZINC [Concomitant]
     Route: 048
     Dates: start: 20101112, end: 20101122
  187. SOLDEM 1 [Concomitant]
     Dates: start: 20101221, end: 20101223
  188. POTASSIUM CHLORIDE [Concomitant]
     Dates: start: 20101201, end: 20101206
  189. BENAMBAX [Concomitant]
     Dates: start: 20101222, end: 20101224
  190. CALCICOL [Concomitant]
     Dates: start: 20110102, end: 20110102
  191. DOBUTAMINE HYDROCHLORIDE [Concomitant]
     Dates: start: 20110103, end: 20110103
  192. LOCOID C [Concomitant]
     Dates: start: 20101008, end: 20101008

REACTIONS (14)
  - PYREXIA [None]
  - PLATELET COUNT DECREASED [None]
  - CELLULITIS [None]
  - DRUG ERUPTION [None]
  - RENAL DISORDER [None]
  - INFECTION [None]
  - ASCITES [None]
  - PNEUMOCYSTIS JIROVECI PNEUMONIA [None]
  - HEPATITIS C [None]
  - ANAEMIA [None]
  - BURSITIS [None]
  - MULTI-ORGAN FAILURE [None]
  - LIVER DISORDER [None]
  - HISTIOCYTOSIS HAEMATOPHAGIC [None]
